FAERS Safety Report 8129812-8 (Version None)
Quarter: 2012Q1

REPORT INFORMATION
  Report Type: 
  Country: None (occurrence: None)
  Receive Date: 20120210
  Receipt Date: 20120210
  Transmission Date: 20120608
  Serious: No
  Sender: FDA-Public Use
  Company Number: None

PATIENT
  Age: 40 Year
  Sex: Female
  Weight: 63.502 kg

DRUGS (1)
  1. ZYRTEC [Suspect]
     Indication: MULTIPLE ALLERGIES
     Dosage: 10 MG
     Dates: start: 20000101, end: 20110209

REACTIONS (3)
  - HYPERSENSITIVITY [None]
  - PRURITUS [None]
  - DRUG EFFECT DECREASED [None]
